FAERS Safety Report 10364660 (Version 2)
Quarter: 2014Q3

REPORT INFORMATION
  Report Type: Report from Study
  Country: CA (occurrence: CA)
  Receive Date: 20140806
  Receipt Date: 20140916
  Transmission Date: 20150326
  Serious: No
  Sender: FDA-Public Use
  Company Number: PHHY2014CA095656

PATIENT
  Sex: Male

DRUGS (13)
  1. OMEPRAZOLE. [Concomitant]
     Active Substance: OMEPRAZOLE
     Dosage: UNK UKN, UNK
  2. RISEDRONATE [Concomitant]
     Active Substance: RISEDRONATE SODIUM
     Dosage: UNK UKN, UNK
  3. FLOVENT [Concomitant]
     Active Substance: FLUTICASONE PROPIONATE
     Dosage: UNK UKN, PRN
  4. APO-K [Concomitant]
     Active Substance: POTASSIUM CHLORIDE
     Dosage: UNK UKN, UNK
  5. CITALOPRAM [Concomitant]
     Active Substance: CITALOPRAM HYDROBROMIDE
     Dosage: UNK UKN, UNK
  6. FUROSEMIDE. [Concomitant]
     Active Substance: FUROSEMIDE
     Dosage: UNK UKN, UNK
  7. LATANOPROST. [Concomitant]
     Active Substance: LATANOPROST
     Dosage: UNK UKN, UNK
  8. SYNTHROID [Concomitant]
     Active Substance: LEVOTHYROXINE SODIUM
     Dosage: UNK UKN, UNK
  9. TRAZODONE [Concomitant]
     Active Substance: TRAZODONE HYDROCHLORIDE
     Dosage: UNK UKN, UNK
  10. TERAZOSIN [Concomitant]
     Active Substance: TERAZOSIN\TERAZOSIN HYDROCHLORIDE
     Dosage: UNK UKN, UNK
  11. TASIGNA [Suspect]
     Active Substance: NILOTINIB
     Indication: CHRONIC MYELOID LEUKAEMIA
     Dosage: 2 DF, BID
     Route: 048
     Dates: start: 20140628
  12. LOVASTATIN. [Concomitant]
     Active Substance: LOVASTATIN
     Dosage: UNK UKN, UNK
  13. SALBUTAMOL [Concomitant]
     Active Substance: ALBUTEROL
     Dosage: UNK UKN, PRN

REACTIONS (1)
  - Polyuria [Unknown]
